FAERS Safety Report 8927932 (Version 1)
Quarter: 2012Q4

REPORT INFORMATION
  Report Type: Spontaneous
  Country: US (occurrence: None)
  Receive Date: 20121126
  Receipt Date: 20121126
  Transmission Date: 20130627
  Serious: Yes (Other)
  Sender: FDA-Public Use
  Company Number: None

PATIENT
  Age: 74 Year
  Sex: Male
  Weight: 95.26 kg

DRUGS (3)
  1. PAROXETINE [Suspect]
     Indication: OBSESSIVE-COMPULSIVE DISORDER
     Dosage: 10 mg 1 daily po
     Route: 048
     Dates: start: 20060612, end: 20121110
  2. PAROXETINE [Suspect]
     Indication: ANXIETY
     Dosage: 10 mg 1 daily po
     Route: 048
     Dates: start: 20060612, end: 20121110
  3. PAROXETINE [Suspect]
     Dosage: 10 mg 1 daily po
     Route: 048
     Dates: start: 20060612, end: 20121110

REACTIONS (5)
  - Tremor [None]
  - Depression [None]
  - Insomnia [None]
  - Social avoidant behaviour [None]
  - Suicidal ideation [None]
